FAERS Safety Report 7056815-7 (Version None)
Quarter: 2010Q4

REPORT INFORMATION
  Report Type: 
  Country: None (occurrence: None)
  Receive Date: 20101022
  Receipt Date: 20091228
  Transmission Date: 20110411
  Serious: No
  Sender: FDA-Public Use
  Company Number: A0836984A

PATIENT
  Age: 21 Year
  Sex: Male

DRUGS (3)
  1. DUAC [Suspect]
     Dosage: 1APP PER DAY
     Route: 061
  2. MOISTURIZER [Suspect]
  3. UNSPECIFIED [Concomitant]
     Route: 061

REACTIONS (2)
  - DRY SKIN [None]
  - SEBORRHOEA [None]
